FAERS Safety Report 4652533-0 (Version None)
Quarter: 2005Q2

REPORT INFORMATION
  Report Type: 
  Country: None (occurrence: None)
  Receive Date: 20050502
  Receipt Date: 20050421
  Transmission Date: 20051028
  Serious: Yes (Hospitalization, Other)
  Sender: FDA-Public Use
  Company Number: 2005064196

PATIENT
  Sex: Male
  Weight: 68.9467 kg

DRUGS (3)
  1. NICORETTE [Suspect]
     Dosage: INHALATION
     Route: 055
  2. NICODERM [Suspect]
     Indication: SMOKING CESSATION THERAPY
     Dosage: 21 MG PATCH QD, TRANSDERMAL
     Route: 062
     Dates: start: 20050216, end: 20050301
  3. ATORVASTATIN CALCIUM [Concomitant]

REACTIONS (3)
  - BLOOD CHOLESTEROL INCREASED [None]
  - FEELING ABNORMAL [None]
  - MYOCARDIAL INFARCTION [None]
